FAERS Safety Report 7917634-X (Version None)
Quarter: 2011Q4

REPORT INFORMATION
  Report Type: 
  Country: None (occurrence: None)
  Receive Date: 20111116
  Receipt Date: 20111103
  Transmission Date: 20120403
  Serious: Yes (Life-Threatening, Hospitalization)
  Sender: FDA-Public Use
  Company Number: CA-ELI_LILLY_AND_COMPANY-CA201111000775

PATIENT
  Sex: Male

DRUGS (23)
  1. DIVALPROEX SODIUM [Concomitant]
     Dosage: 1000 MG, EACH EVENING
  2. RITALIN [Concomitant]
  3. CLOZAPINE [Concomitant]
     Dosage: 37.5 MG, EACH EVENING
  4. FLOVENT [Concomitant]
     Dosage: 250 MG, TWO PUFFS, BID
  5. COMBIVENT [Concomitant]
     Dosage: 4 DF, QID
  6. LITHIUM CARBONATE [Concomitant]
     Dosage: 600 MG, EACH EVENING
  7. TOPIRAMATE [Concomitant]
     Dosage: 25 MG, EACH EVENING
  8. AMITRIPTYLINE HCL [Concomitant]
     Dosage: 25 MG, UNKNOWN
  9. DEXIDRINE [Concomitant]
     Dosage: 45 MG, QD
  10. UNIPHYL [Concomitant]
     Dosage: 400 MG, EACH EVENING
  11. VENTOLIN                                /SCH/ [Concomitant]
     Dosage: 2 DF, PRN
  12. ZYPREXA [Suspect]
     Dosage: 5 MG, EACH EVENING
  13. ZYPREXA [Suspect]
     Dosage: 10 MG, EACH EVENING
  14. ZYPREXA [Suspect]
     Dosage: 12.5 MG, EACH EVENING
  15. SERTRALINE HYDROCHLORIDE [Concomitant]
     Dosage: 100 MG, QD
  16. NALTREXONE HYDROCHLORIDE [Concomitant]
     Dosage: 25 MG, QD
  17. ZYPREXA [Suspect]
     Dosage: 2.5 MG, EACH EVENING
  18. VALPROATE SODIUM [Concomitant]
     Dosage: 500 MG, EACH EVENING
  19. VIOXX [Concomitant]
     Dosage: 25 MG, QD
  20. SINGULAIR [Concomitant]
  21. PERCOCET [Concomitant]
     Dosage: 1 DF, PRN
  22. ZYPREXA [Suspect]
     Dosage: 15 MG, EACH EVENING
  23. WELLBUTRIN [Concomitant]
     Dosage: 150 MG, BID

REACTIONS (7)
  - BLOOD TRIGLYCERIDES INCREASED [None]
  - ONYCHOMYCOSIS [None]
  - HYPERGLYCAEMIA [None]
  - DYSPNOEA EXERTIONAL [None]
  - BLOOD CHOLESTEROL INCREASED [None]
  - WEIGHT INCREASED [None]
  - PNEUMONIA [None]
